FAERS Safety Report 5737343-5 (Version None)
Quarter: 2008Q2

REPORT INFORMATION
  Report Type: 
  Country: None (occurrence: None)
  Receive Date: 20080513
  Receipt Date: 20080513
  Transmission Date: 20081010
  Serious: Yes (Other)
  Sender: FDA-Public Use
  Company Number: None

PATIENT
  Sex: Male

DRUGS (9)
  1. DIGOXIN [Suspect]
     Dosage: ONE DAILY PO
     Route: 048
     Dates: start: 20070911, end: 20080508
  2. SPIRONOLACTONE [Concomitant]
  3. VIAGRA [Concomitant]
  4. COZAAR [Concomitant]
  5. VYTORIN [Concomitant]
  6. BIDIL [Concomitant]
  7. CARVEDILOL [Concomitant]
  8. PRILOSEC [Concomitant]
  9. ZYRTEC [Concomitant]

REACTIONS (4)
  - CHROMATOPSIA [None]
  - NAUSEA [None]
  - PHARMACEUTICAL PRODUCT COMPLAINT [None]
  - VOMITING [None]
